FAERS Safety Report 21360911 (Version 1)
Quarter: 2022Q3

REPORT INFORMATION
  Report Type: Spontaneous
  Country: US (occurrence: US)
  Receive Date: 20220921
  Receipt Date: 20220921
  Transmission Date: 20221027
  Serious: Yes (Hospitalization, Other)
  Sender: FDA-Public Use
  Company Number: US-BAYER-2022A128390

PATIENT
  Age: 78 Year
  Sex: Male

DRUGS (1)
  1. KERENDIA [Suspect]
     Active Substance: FINERENONE

REACTIONS (4)
  - Syncope [None]
  - Hypotension [None]
  - Fall [None]
  - Tibia fracture [None]

NARRATIVE: CASE EVENT DATE: 20220913
